FAERS Safety Report 8593445 (Version 3)
Quarter: 2014Q1

REPORT INFORMATION
  Report Type: Spontaneous
  Country: US (occurrence: US)
  Receive Date: 20120604
  Receipt Date: 20140108
  Transmission Date: 20141002
  Serious: Yes (Hospitalization, Other)
  Sender: FDA-Public Use
  Company Number: US-ASTRAZENECA-2012SE34891

PATIENT
  Age: 69 Year
  Sex: Female
  Weight: 86.6 kg

DRUGS (29)
  1. NEXIUM [Suspect]
     Dosage: ONE TIME A DAY
     Route: 048
  2. NEXIUM [Suspect]
     Route: 048
     Dates: start: 20030611
  3. NEXIUM [Suspect]
     Route: 048
     Dates: start: 201009
  4. TYLENOL [Concomitant]
     Indication: ARTHRITIS
  5. DIURETICS [Concomitant]
  6. LASIX [Concomitant]
  7. MEDROL [Concomitant]
  8. DARVOCET N [Concomitant]
     Dosage: 1 PO Q 4-6 HOUR PRN
     Route: 048
  9. PIROXICAM [Concomitant]
     Dates: start: 20041203
  10. PREDNISONE [Concomitant]
     Dates: start: 20041215
  11. PROPO-N/APAP [Concomitant]
     Dates: start: 20050114
  12. MOBIC [Concomitant]
     Dates: start: 20050125
  13. METRONIDAZOLE [Concomitant]
     Dates: start: 20050311
  14. FLUCONAZOLE [Concomitant]
     Dates: start: 20051226
  15. FERROUS SULPHATE [Concomitant]
     Dates: start: 20060209
  16. MOMETASONE FUROATE [Concomitant]
     Dates: start: 20060210
  17. ANUCORT HC [Concomitant]
     Dates: start: 20060518
  18. PROMETHAZINE [Concomitant]
     Dates: start: 20060710
  19. PROTONIX [Concomitant]
     Dates: start: 20060925
  20. NAPROXEN [Concomitant]
     Dates: start: 20070722
  21. SUCRALFATE [Concomitant]
     Dates: start: 20070719
  22. ACIPHEX [Concomitant]
     Dates: start: 20070417
  23. NITROFURANTOIN [Concomitant]
     Dates: start: 20071026
  24. AMILOR/HCTZ [Concomitant]
     Dates: start: 20071026
  25. TIMOLOL MALEATE [Concomitant]
     Dates: start: 20071112
  26. BENZONATATE [Concomitant]
     Dates: start: 20080218
  27. OMEPRAZOLE [Concomitant]
     Dates: start: 20080218
  28. DIPHENOXYLATE ATR [Concomitant]
     Dates: start: 20081103
  29. LOPERAMIDE [Concomitant]
     Dates: start: 20100222

REACTIONS (8)
  - Gastrointestinal haemorrhage [Unknown]
  - Osteoporosis [Unknown]
  - Multiple fractures [Unknown]
  - Osteoarthritis [Unknown]
  - Arthritis [Unknown]
  - Cataract [Unknown]
  - Bone pain [Unknown]
  - Tendonitis [Unknown]
